FAERS Safety Report 6119700-0 (Version None)
Quarter: 2009Q1

REPORT INFORMATION
  Report Type: 
  Country: None (occurrence: None)
  Receive Date: 20090316
  Receipt Date: 20090304
  Transmission Date: 20090719
  Serious: Yes (Other)
  Sender: FDA-Public Use
  Company Number: JP-PFIZER INC-2008095011

PATIENT

DRUGS (16)
  1. RIFABUTIN [Suspect]
     Indication: TUBERCULOSIS
     Dosage: 150 MG, 1X/DAY
     Route: 048
     Dates: start: 20081027, end: 20081106
  2. CYCLOSERINE [Concomitant]
     Dosage: UNK
     Route: 048
  3. EBUTOL [Concomitant]
     Dosage: UNK
     Route: 048
  4. PYRAZINAMIDE [Concomitant]
     Route: 048
  5. CIPROXAN [Concomitant]
     Route: 048
  6. SELBEX [Concomitant]
     Dosage: UNK
     Route: 048
  7. VESICARE [Concomitant]
     Dosage: UNK
     Route: 048
  8. FERROMIA [Concomitant]
  9. PYDOXAL [Concomitant]
     Dosage: UNK
     Route: 048
  10. CHLORPHENIRAMINE MALEATE [Concomitant]
     Dosage: UNK
     Route: 048
  11. ADONA [Concomitant]
     Dosage: UNK
     Route: 048
  12. YODEL [Concomitant]
     Dosage: UNK
     Route: 048
  13. TRANEXAMIC ACID [Concomitant]
     Dosage: UNK
     Route: 048
  14. DIFLUCORTOLONE VALERATE [Concomitant]
     Dosage: UNK
     Route: 062
  15. MOHRUS [Concomitant]
     Dosage: UNK
     Route: 062
  16. CROTAMITON [Concomitant]
     Dosage: UNK
     Route: 062

REACTIONS (2)
  - PANCYTOPENIA [None]
  - RENAL IMPAIRMENT [None]
